FAERS Safety Report 17521274 (Version 1)
Quarter: 2020Q1

REPORT INFORMATION
  Report Type: Spontaneous
  Country: US (occurrence: US)
  Receive Date: 20200310
  Receipt Date: 20200310
  Transmission Date: 20200409
  Serious: Yes (Hospitalization)
  Sender: FDA-Public Use
  Company Number: None

PATIENT
  Age: 39 Year
  Sex: Female
  Weight: 73.35 kg

DRUGS (8)
  1. ASPIRIN 81MG [Concomitant]
     Active Substance: ASPIRIN
  2. FLUOXETINE [Concomitant]
     Active Substance: FLUOXETINE HYDROCHLORIDE
  3. BUMETANIDE. [Concomitant]
     Active Substance: BUMETANIDE
  4. CYCLOPHOSPHAMIDE. [Suspect]
     Active Substance: CYCLOPHOSPHAMIDE
     Dosage: ?          OTHER FREQUENCY:DAYS 1,8,15,22;?
     Dates: start: 20191227, end: 20200304
  5. DEXAMETHASONE 4MG [Concomitant]
     Active Substance: DEXAMETHASONE
  6. SPIRONOLACTONE 25MG [Concomitant]
     Active Substance: SPIRONOLACTONE
  7. LISINOPRIL. [Concomitant]
     Active Substance: LISINOPRIL
  8. ACYCLOVIR 400MG [Concomitant]
     Active Substance: ACYCLOVIR

REACTIONS (1)
  - Pneumonia [None]

NARRATIVE: CASE EVENT DATE: 20200304
